FAERS Safety Report 4469192-2 (Version None)
Quarter: 2004Q4

REPORT INFORMATION
  Report Type: 
  Country: None (occurrence: None)
  Receive Date: 20041005
  Receipt Date: 20040924
  Transmission Date: 20050328
  Serious: Yes (Hospitalization)
  Sender: FDA-Public Use
  Company Number: 2004063239

PATIENT
  Age: 84 Year
  Sex: Female

DRUGS (6)
  1. TIKOSYN [Suspect]
     Indication: ARRHYTHMIA
     Dosage: 125 MCG (125 MCG, 1 IN 1 D), ORAL
     Route: 048
  2. ALENDRONATE SODIUM [Concomitant]
  3. ESCITALOPRAM (ESCITALOPRAM) [Concomitant]
  4. ISOSORBIDE MONONITRATE [Concomitant]
  5. QUETIAPINE FUMARATE (QUETIAPINE (FUMARATE) [Concomitant]
  6. ROFECOXIB [Concomitant]

REACTIONS (3)
  - HALLUCINATION [None]
  - PSYCHOTIC DISORDER [None]
  - THERAPY NON-RESPONDER [None]
